FAERS Safety Report 15927923 (Version 1)
Quarter: 2019Q1

REPORT INFORMATION
  Report Type: Report from Study
  Country: IT (occurrence: IT)
  Receive Date: 20190206
  Receipt Date: 20190206
  Transmission Date: 20190417
  Serious: Yes (Hospitalization)
  Sender: FDA-Public Use
  Company Number: IT-TEVA-2019-IT-1007981

PATIENT
  Age: 78 Year
  Sex: Female
  Weight: 48 kg

DRUGS (4)
  1. DAFLON [Concomitant]
  2. DICLOFENAC [Suspect]
     Active Substance: DICLOFENAC
     Indication: ARTHRALGIA
     Dosage: 1 DOSAGE FORMS DAILY;
     Route: 048
     Dates: start: 20170209, end: 20170309
  3. ALENDRONIC ACID [Concomitant]
     Active Substance: ALENDRONIC ACID
  4. CACIT (TM) 1000 [Concomitant]

REACTIONS (3)
  - Hemianopia [Recovering/Resolving]
  - Cerebral haemorrhage [Recovering/Resolving]
  - Hemiparesis [Recovering/Resolving]

NARRATIVE: CASE EVENT DATE: 20170308
